FAERS Safety Report 23034390 (Version 1)
Quarter: 2023Q4

REPORT INFORMATION
  Report Type: Spontaneous
  Country: US (occurrence: US)
  Receive Date: 20231005
  Receipt Date: 20231005
  Transmission Date: 20240110
  Serious: Yes (Life-Threatening, Hospitalization, Other)
  Sender: FDA-Public Use
  Company Number: US-SUN PHARMACEUTICAL INDUSTRIES LTD-2023R1-411067

PATIENT
  Age: 28 Year
  Sex: Male

DRUGS (2)
  1. BUPROPION [Suspect]
     Active Substance: BUPROPION
     Indication: Depression
     Dosage: 300 MILLIGRAM
     Route: 065
  2. OLANZAPINE [Suspect]
     Active Substance: OLANZAPINE
     Indication: Depression
     Dosage: 10 MILLIGRAM

REACTIONS (4)
  - Ventricular tachycardia [Recovered/Resolved]
  - Overdose [Unknown]
  - Clonic convulsion [Recovering/Resolving]
  - Electrocardiogram QRS complex prolonged [Unknown]
